FAERS Safety Report 4532904-3 (Version None)
Quarter: 2004Q4

REPORT INFORMATION
  Report Type: 
  Country: None (occurrence: None)
  Receive Date: 20041221
  Receipt Date: 20030522
  Transmission Date: 20050328
  Serious: Yes (Hospitalization, Other)
  Sender: FDA-Public Use
  Company Number: PHFR2003GB02133

PATIENT
  Age: 45 Year
  Sex: Female

DRUGS (4)
  1. CLOZARIL [Suspect]
     Indication: SCHIZOPHRENIA
     Dosage: 200MG/MANE+300MG/NOCTE
     Route: 048
     Dates: start: 19970527
  2. CLOZARIL [Suspect]
     Dosage: 200MG/MANE+250MG/NOCTE
     Route: 048
     Dates: start: 20030805
  3. CLOZARIL [Suspect]
     Dosage: 400MG/DAY
     Route: 048
  4. IRON [Concomitant]
     Route: 065

REACTIONS (11)
  - ANAEMIA [None]
  - CONSTIPATION [None]
  - CONVULSION [None]
  - GLOMERULAR FILTRATION RATE DECREASED [None]
  - HAEMOGLOBIN DECREASED [None]
  - HYPERKALAEMIA [None]
  - MEGACOLON ACQUIRED [None]
  - NAUSEA [None]
  - OBSTRUCTIVE UROPATHY [None]
  - RASH SCALY [None]
  - RENAL FAILURE CHRONIC [None]
